FAERS Safety Report 22394959 (Version 1)
Quarter: 2023Q2

REPORT INFORMATION
  Report Type: Report from Study
  Country: CO (occurrence: CO)
  Receive Date: 20230601
  Receipt Date: 20230601
  Transmission Date: 20230722
  Serious: Yes (Other)
  Sender: FDA-Public Use
  Company Number: CO-JNJFOC-20230564700

PATIENT

DRUGS (2)
  1. SIMPONI [Suspect]
     Active Substance: GOLIMUMAB
     Indication: Rheumatoid arthritis
     Route: 058
  2. REMICADE [Suspect]
     Active Substance: INFLIXIMAB
     Indication: Rheumatoid arthritis
     Route: 041

REACTIONS (12)
  - Cardiac failure [Unknown]
  - Tuberculosis [Unknown]
  - Sjogren^s syndrome [Unknown]
  - Influenza [Unknown]
  - Systemic lupus erythematosus [Unknown]
  - Injection site urticaria [Unknown]
  - Vasculitis [Unknown]
  - Arthralgia [Unknown]
  - Migraine [Unknown]
  - Dyslipidaemia [Unknown]
  - Chronic obstructive pulmonary disease [Unknown]
  - Dermatitis [Unknown]
